FAERS Safety Report 20738691 (Version 1)
Quarter: 2022Q2

REPORT INFORMATION
  Report Type: Spontaneous
  Country: JP (occurrence: JP)
  Receive Date: 20220422
  Receipt Date: 20220422
  Transmission Date: 20220720
  Serious: Yes (Death)
  Sender: FDA-Public Use
  Company Number: JP-STRIDES ARCOLAB LIMITED-2022SP004309

PATIENT
  Age: 63 Year
  Sex: Male

DRUGS (19)
  1. PREDNISOLONE [Suspect]
     Active Substance: PREDNISOLONE
     Indication: Diffuse large B-cell lymphoma
     Dosage: UNK (SEVEN COURSES)
     Route: 065
     Dates: start: 2007
  2. PREDNISOLONE [Suspect]
     Active Substance: PREDNISOLONE
     Dosage: UNK (ONE COURSE)
     Route: 065
     Dates: start: 2013
  3. ETOPOSIDE [Suspect]
     Active Substance: ETOPOSIDE
     Indication: Diffuse large B-cell lymphoma
     Dosage: UNK (THREE COURSES)
     Route: 065
     Dates: start: 2012
  4. ETOPOSIDE [Suspect]
     Active Substance: ETOPOSIDE
     Dosage: UNK (HIGH-DOSE CHEMOTHERAPY)
     Route: 065
     Dates: start: 2012
  5. ETOPOSIDE [Suspect]
     Active Substance: ETOPOSIDE
     Dosage: UNK (ONE COURSE)
     Route: 065
     Dates: start: 2013
  6. VINCRISTINE [Suspect]
     Active Substance: VINCRISTINE
     Indication: Diffuse large B-cell lymphoma
     Dosage: UNK (SEVEN COURSES)
     Route: 065
     Dates: start: 2007
  7. VINCRISTINE [Suspect]
     Active Substance: VINCRISTINE
     Dosage: UNK (ONE COURSE)
     Route: 065
     Dates: start: 2013
  8. RITUXIMAB [Suspect]
     Active Substance: RITUXIMAB
     Indication: Diffuse large B-cell lymphoma
     Dosage: UNK (SEVEN COURSES)
     Route: 065
     Dates: start: 2007
  9. RITUXIMAB [Suspect]
     Active Substance: RITUXIMAB
     Dosage: UNK (FOUR COURSES)
     Route: 065
     Dates: start: 2010
  10. RITUXIMAB [Suspect]
     Active Substance: RITUXIMAB
     Dosage: UNK (THREE COURSES)
     Route: 065
     Dates: start: 2012
  11. CYCLOPHOSPHAMIDE [Suspect]
     Active Substance: CYCLOPHOSPHAMIDE
     Indication: Diffuse large B-cell lymphoma
     Dosage: UNK (SEVEN COURSES)
     Route: 065
     Dates: start: 2007
  12. CYCLOPHOSPHAMIDE [Suspect]
     Active Substance: CYCLOPHOSPHAMIDE
     Dosage: UNK (ONE COURSE)
     Route: 065
     Dates: start: 2013
  13. DOXORUBICIN [Suspect]
     Active Substance: DOXORUBICIN
     Indication: Diffuse large B-cell lymphoma
     Dosage: UNK (SEVEN COURSES)
     Route: 065
     Dates: start: 2007
  14. DOXORUBICIN [Suspect]
     Active Substance: DOXORUBICIN
     Dosage: UNK (ONE COURSE)
     Route: 065
     Dates: start: 2013
  15. CISPLATIN [Suspect]
     Active Substance: CISPLATIN
     Indication: Diffuse large B-cell lymphoma
     Dosage: UNK (THREE COURSES)
     Route: 065
     Dates: start: 2012
  16. CYTARABINE [Suspect]
     Active Substance: CYTARABINE
     Indication: Diffuse large B-cell lymphoma
     Dosage: UNK (THREE COURSES)
     Route: 065
     Dates: start: 2012
  17. CYTARABINE [Suspect]
     Active Substance: CYTARABINE
     Dosage: UNK (HIGH-DOSE CHEMOTHERAPY)
     Route: 065
     Dates: start: 2012
  18. METHYLPREDNISOLONE [Suspect]
     Active Substance: METHYLPREDNISOLONE
     Indication: Diffuse large B-cell lymphoma
     Dosage: UNK (THREE COURSES)
     Route: 065
     Dates: start: 2012
  19. MELPHALAN [Suspect]
     Active Substance: MELPHALAN
     Indication: Diffuse large B-cell lymphoma
     Dosage: UNK (HIGH-DOSE CHEMOTHERAPY)
     Route: 065
     Dates: start: 2012

REACTIONS (3)
  - Toxoplasmosis [Fatal]
  - Infection reactivation [Fatal]
  - Lung disorder [Fatal]

NARRATIVE: CASE EVENT DATE: 20130101
